FAERS Safety Report 18219647 (Version 1)
Quarter: 2020Q3

REPORT INFORMATION
  Report Type: Spontaneous
  Country: US (occurrence: US)
  Receive Date: 20200901
  Receipt Date: 20200901
  Transmission Date: 20201103
  Serious: No
  Sender: FDA-Public Use
  Company Number: US-JNJFOC-20200828621

PATIENT
  Age: 72 Year
  Sex: Male

DRUGS (2)
  1. ERDAFITINIB. [Suspect]
     Active Substance: ERDAFITINIB
     Indication: PRODUCT USED FOR UNKNOWN INDICATION
     Route: 048
  2. ERDAFITINIB. [Suspect]
     Active Substance: ERDAFITINIB
     Dosage: PATIENT TAKING 7 MG ALTERNATING WITH 4 MG
     Route: 048
     Dates: start: 20200415

REACTIONS (2)
  - Onycholysis [Unknown]
  - Hypophosphataemia [Unknown]
